FAERS Safety Report 13084300 (Version 1)
Quarter: 2017Q1

REPORT INFORMATION
  Report Type: Spontaneous
  Country: US (occurrence: US)
  Receive Date: 20170102
  Receipt Date: 20170102
  Transmission Date: 20170428
  Serious: Yes (Other)
  Sender: FDA-Public Use
  Company Number: None

PATIENT
  Age: 57 Year
  Sex: Female
  Weight: 99.45 kg

DRUGS (12)
  1. METAXALONE. [Concomitant]
     Active Substance: METAXALONE
  2. DICLOFENAC [Concomitant]
     Active Substance: DICLOFENAC
  3. LIVALO [Concomitant]
     Active Substance: PITAVASTATIN CALCIUM
  4. VITAMIN B12 [Concomitant]
     Active Substance: CYANOCOBALAMIN
  5. ESTRADIOL. [Suspect]
     Active Substance: ESTRADIOL
     Indication: HYSTERECTOMY
     Dosage: ?          QUANTITY:8 PATCH(ES);OTHER FREQUENCY:BIWEEKLY;?
     Route: 062
     Dates: start: 20161202, end: 20161220
  6. VITAMIN D2 [Concomitant]
     Active Substance: ERGOCALCIFEROL
  7. PANTOPRAZOLE [Concomitant]
     Active Substance: PANTOPRAZOLE SODIUM
  8. VALSARTAN. [Concomitant]
     Active Substance: VALSARTAN
  9. ESTRADIOL. [Suspect]
     Active Substance: ESTRADIOL
     Indication: MENOPAUSAL SYMPTOMS
     Dosage: ?          QUANTITY:8 PATCH(ES);OTHER FREQUENCY:BIWEEKLY;?
     Route: 062
     Dates: start: 20161202, end: 20161220
  10. METFORMIN [Concomitant]
     Active Substance: METFORMIN HYDROCHLORIDE
  11. CARVEDILOL. [Concomitant]
     Active Substance: CARVEDILOL
  12. ECOTRIN [Concomitant]
     Active Substance: ASPIRIN

REACTIONS (19)
  - Abulia [None]
  - Dry eye [None]
  - Pain [None]
  - Nausea [None]
  - Feeling cold [None]
  - Dizziness [None]
  - Decreased interest [None]
  - Eye pain [None]
  - Ear pain [None]
  - Product substitution issue [None]
  - Hot flush [None]
  - Drug ineffective [None]
  - Headache [None]
  - Irritability [None]
  - Feeding intolerance [None]
  - Fatigue [None]
  - Decreased appetite [None]
  - Lacrimation increased [None]
  - Breast tenderness [None]

NARRATIVE: CASE EVENT DATE: 20161202
